FAERS Safety Report 4390115-9 (Version None)
Quarter: 2004Q2

REPORT INFORMATION
  Report Type: 
  Country: None (occurrence: None)
  Receive Date: 20040630
  Receipt Date: 20040618
  Transmission Date: 20050107
  Serious: Yes (Hospitalization)
  Sender: FDA-Public Use
  Company Number: 167-20785-04060523

PATIENT
  Age: 47 Year
  Sex: Male

DRUGS (7)
  1. THALIDOMIDE - PHARMION (THALIDOMIDE) (100 MILLIGRAM, CAPSULES) [Suspect]
     Indication: SMALL CELL LUNG CANCER STAGE UNSPECIFIED
     Dosage: 100 MG, QD, ORAL
     Route: 048
     Dates: start: 20031125
  2. CARBOPLATIN (CARBOPLATIN) (SOLUTION) [Suspect]
     Indication: SMALL CELL LUNG CANCER STAGE UNSPECIFIED
     Dosage: 260MG THREE TIMES A WEEK, INTRAVENOUS
     Route: 042
     Dates: start: 20031124, end: 20031215
  3. ETOPOSIDE [Suspect]
     Indication: SMALL CELL LUNG CANCER STAGE UNSPECIFIED
     Dosage: 170MG THREE TIMES A WEEK, INTRAVENOUS
     Route: 042
     Dates: start: 20031124, end: 20031215
  4. DEXAMETHASONE [Concomitant]
  5. CO-DYNAMOL (PARAMOL-118) (TABLETS) [Concomitant]
  6. METOCLOPRAMIDE (METOCLOPRAMIDE) (TABLETS) [Concomitant]
  7. DEMECLOCYCLINE (DEMECLOCYCLINE) [Concomitant]

REACTIONS (4)
  - ALCOHOL USE [None]
  - HYPONATRAEMIA [None]
  - INAPPROPRIATE ANTIDIURETIC HORMONE SECRETION [None]
  - PSYCHOTIC DISORDER [None]
